FAERS Safety Report 7450914-3 (Version None)
Quarter: 2011Q2

REPORT INFORMATION
  Report Type: 
  Country: None (occurrence: None)
  Receive Date: 20110502
  Receipt Date: 20110419
  Transmission Date: 20111010
  Serious: Yes (Other)
  Sender: FDA-Public Use
  Company Number: BR-ROCHE-681179

PATIENT
  Sex: Female
  Weight: 71.2 kg

DRUGS (4)
  1. FERROUS SULFATE TAB [Concomitant]
     Dosage: TOTAL DAILY DOSE: 2 TABS.
     Dates: start: 20091001
  2. VITAMIN B COMPLEX CAP [Concomitant]
     Dosage: TOTAL DAILY DOSE: 2 TABS.
     Dates: start: 20091001
  3. METHOXY POLYETHYLENE GLYCOL-EPOETIN BETA [Suspect]
     Dosage: FORM: PRE-FILLED SYRINGE.
     Route: 058
     Dates: start: 20090824, end: 20100106
  4. FOLIC ACID [Concomitant]
     Dosage: DRUG REPORTED AS FOLATE.
     Dates: start: 20091001

REACTIONS (1)
  - RENAL IMPAIRMENT [None]
